FAERS Safety Report 18723629 (Version 1)
Quarter: 2021Q1

REPORT INFORMATION
  Report Type: Spontaneous
  Country: US (occurrence: US)
  Receive Date: 20210108
  Receipt Date: 20210108
  Transmission Date: 20210419
  Serious: Yes (Other)
  Sender: FDA-Public Use
  Company Number: None

PATIENT
  Sex: Male

DRUGS (2)
  1. NICODERM CQ [Suspect]
     Active Substance: NICOTINE
  2. SIGNATURE CARE NICOTINE [Suspect]
     Active Substance: NICOTINE

REACTIONS (1)
  - Urticaria [None]
